FAERS Safety Report 5223561-1 (Version None)
Quarter: 2007Q1

REPORT INFORMATION
  Report Type: 
  Country: None (occurrence: None)
  Receive Date: 20070125
  Receipt Date: 20070105
  Transmission Date: 20070707
  Serious: Yes (Hospitalization, Other)
  Sender: FDA-Public Use
  Company Number: THYM-11190

PATIENT
  Age: 61 Year
  Sex: Female
  Weight: 87 kg

DRUGS (9)
  1. THYMOGLOBULIN [Suspect]
     Indication: HEART TRANSPLANT REJECTION
     Dosage: 88 MG QD IV
     Route: 042
     Dates: start: 20061204, end: 20061204
  2. THYMOGLOBULIN [Suspect]
     Indication: HEART TRANSPLANT REJECTION
     Dosage: 44 MG QD IV
     Route: 042
     Dates: start: 20061211, end: 20061211
  3. THYMOGLOBULIN [Suspect]
     Indication: HEART TRANSPLANT REJECTION
     Dosage: 22 MG QD IV
     Route: 042
     Dates: start: 20061212, end: 20061212
  4. THYMOGLOBULIN [Suspect]
     Indication: HEART TRANSPLANT REJECTION
     Dosage: 44 MG QD IV
     Route: 042
     Dates: start: 20061214, end: 20061214
  5. THYMOGLOBULIN [Suspect]
     Indication: HEART TRANSPLANT REJECTION
     Dosage: 22 MG QD IV
     Route: 042
     Dates: start: 20061215, end: 20061216
  6. THYMOGLOBULIN [Suspect]
     Indication: HEART TRANSPLANT REJECTION
     Dosage: 44 MG QD IV
     Route: 042
     Dates: start: 20061217, end: 20061220
  7. CELLCEPT [Concomitant]
  8. SOLU-MEDROL [Concomitant]
  9. CLONIDINE [Concomitant]

REACTIONS (3)
  - HAEMODYNAMIC INSTABILITY [None]
  - HEART TRANSPLANT REJECTION [None]
  - LYMPHOCYTE COUNT DECREASED [None]
